FAERS Safety Report 11426544 (Version 1)
Quarter: 2015Q3

REPORT INFORMATION
  Report Type: Report from Study
  Country: HU (occurrence: HU)
  Receive Date: 20150827
  Receipt Date: 20150827
  Transmission Date: 20151125
  Serious: Yes (Hospitalization)
  Sender: FDA-Public Use
  Company Number: HU-BAXALTA-2015BAX027340

PATIENT
  Age: 2 Year
  Sex: Male
  Weight: 15.2 kg

DRUGS (3)
  1. VIGANTOL [Concomitant]
     Indication: PROPHYLAXIS
     Dosage: 1X A DAY
     Route: 048
     Dates: start: 20141030
  2. ADVATE [Suspect]
     Active Substance: ANTIHEMOPHILIC FACTOR, HUMAN RECOMBINANT
     Indication: HAEMORRHAGE PROPHYLAXIS
     Dosage: 250 IU, 3X A WEEK
     Route: 042
     Dates: start: 20150512, end: 20150512
  3. ADVATE [Suspect]
     Active Substance: ANTIHEMOPHILIC FACTOR, HUMAN RECOMBINANT
     Indication: FACTOR VIII DEFICIENCY
     Dosage: 500 IU, 3X A WEEK
     Dates: start: 20150512, end: 20150512

REACTIONS (1)
  - Gastroenteritis [Recovered/Resolved]

NARRATIVE: CASE EVENT DATE: 20150514
